FAERS Safety Report 21329214 (Version 1)
Quarter: 2022Q3

REPORT INFORMATION
  Report Type: Spontaneous
  Country: US (occurrence: None)
  Receive Date: 20220913
  Receipt Date: 20220913
  Transmission Date: 20221026
  Serious: Yes (Life-Threatening, Hospitalization)
  Sender: FDA-Public Use
  Company Number: None

PATIENT
  Age: 48 Year
  Sex: Female
  Weight: 97.98 kg

DRUGS (3)
  1. OCREVUS [Suspect]
     Active Substance: OCRELIZUMAB
     Dates: start: 20220314, end: 20220328
  2. METHYLPREDNISOLONE [Suspect]
     Active Substance: METHYLPREDNISOLONE
     Dates: start: 20220819, end: 20220821
  3. Intravenous melhylprednisolone [Concomitant]
     Dates: start: 20220819, end: 20220821

REACTIONS (1)
  - Pancreatitis haemorrhagic [None]

NARRATIVE: CASE EVENT DATE: 20220822
